FAERS Safety Report 9724841 (Version 1)
Quarter: 2013Q4

REPORT INFORMATION
  Report Type: Spontaneous
  Country: BR (occurrence: BR)
  Receive Date: 20131202
  Receipt Date: 20131202
  Transmission Date: 20140711
  Serious: Yes (Death, Hospitalization, Other)
  Sender: FDA-Public Use
  Company Number: BR-ABBVIE-13P-020-1174464-00

PATIENT
  Sex: Female
  Weight: 60 kg

DRUGS (5)
  1. HUMIRA [Suspect]
     Indication: RHEUMATOID ARTHRITIS
     Route: 058
     Dates: start: 20120915, end: 20130906
  2. UNKNOWN MEDICATION [Suspect]
     Indication: TUBERCULOSIS
  3. LEFLUNOMIDE [Concomitant]
     Indication: RHEUMATOID ARTHRITIS
     Route: 048
     Dates: start: 20111127, end: 20131017
  4. DEFLAZACORT [Concomitant]
     Indication: PRODUCT USED FOR UNKNOWN INDICATION
     Route: 048
     Dates: end: 20131017
  5. LEVOTHYROXINE SODIUM [Concomitant]
     Indication: ULCER
     Route: 048
     Dates: end: 20131017

REACTIONS (9)
  - Hypovolaemic shock [Fatal]
  - Gastrointestinal haemorrhage [Fatal]
  - Renal failure acute [Fatal]
  - Rheumatoid arthritis [Fatal]
  - Immunodeficiency [Fatal]
  - Hepatitis [Unknown]
  - Tuberculosis [Unknown]
  - Unevaluable event [Unknown]
  - Urinary tract infection [Unknown]
